FAERS Safety Report 19392431 (Version 1)
Quarter: 2021Q2

REPORT INFORMATION
  Report Type: Report from Study
  Country: ZA (occurrence: ZA)
  Receive Date: 20210608
  Receipt Date: 20210608
  Transmission Date: 20210717
  Serious: Yes (Death)
  Sender: FDA-Public Use
  Company Number: ZA-ASTRAZENECA-2021A500590

PATIENT
  Sex: Female

DRUGS (6)
  1. SYMBICORD [Suspect]
     Active Substance: BUDESONIDE\FORMOTEROL
     Dosage: 160 UG/INHAL
     Route: 055
  2. BILOCOR [Concomitant]
     Active Substance: BISOPROLOL FUMARATE
  3. AMLOC [Concomitant]
  4. CARZIN XL [Concomitant]
     Active Substance: DOXAZOSIN MESYLATE
  5. ZOMEVEK [Concomitant]
     Active Substance: VALSARTAN
  6. CO?ZOMEVEK [Concomitant]
     Active Substance: HYDROCHLOROTHIAZIDE\VALSARTAN

REACTIONS (1)
  - Death [Fatal]
